FAERS Safety Report 4775106-8 (Version None)
Quarter: 2005Q3

REPORT INFORMATION
  Report Type: 
  Country: None (occurrence: None)
  Receive Date: 20050920
  Receipt Date: 20050906
  Transmission Date: 20060218
  Serious: Yes (Other)
  Sender: FDA-Public Use
  Company Number: 2005BI016672

PATIENT
  Age: 40 Year
  Sex: Male
  Weight: 81 kg

DRUGS (2)
  1. NATALIZUMAB (NATALIZUMAB) [Suspect]
     Indication: MULTIPLE SCLEROSIS
     Dosage: 300 MG; QM; IV
     Route: 042
     Dates: start: 20040924, end: 20050211
  2. PREDNISOLONE [Concomitant]

REACTIONS (1)
  - PAPILLARY THYROID CANCER [None]
